FAERS Safety Report 4862795-2 (Version None)
Quarter: 2005Q4

REPORT INFORMATION
  Report Type: 
  Country: None (occurrence: None)
  Receive Date: 20051221
  Receipt Date: 20050920
  Transmission Date: 20060501
  Serious: No
  Sender: FDA-Public Use
  Company Number: US-BRISTOL-MYERS SQUIBB COMPANY-13117635

PATIENT
  Age: 6 Decade
  Sex: Male

DRUGS (2)
  1. REYATAZ [Suspect]
  2. LIPITOR [Concomitant]

REACTIONS (1)
  - ARTHRALGIA [None]
